FAERS Safety Report 11106833 (Version 1)
Quarter: 2015Q2

REPORT INFORMATION
  Report Type: Spontaneous
  Country: TR (occurrence: None)
  Receive Date: 20150508
  Receipt Date: 20150508
  Transmission Date: 20150821
  Serious: Yes (Other)
  Sender: FDA-Public Use
  Company Number: TR-ZYDUS-007879

PATIENT
  Age: 11 Year
  Sex: Male

DRUGS (1)
  1. ATOMOXETINE (ATOMOXETINE) [Suspect]
     Active Substance: ATOMOXETINE

REACTIONS (1)
  - Leukopenia [None]
